FAERS Safety Report 11950754 (Version 1)
Quarter: 2016Q1

REPORT INFORMATION
  Report Type: Spontaneous
  Country: AU (occurrence: AU)
  Receive Date: 20160125
  Receipt Date: 20160125
  Transmission Date: 20160526
  Serious: Yes (Other)
  Sender: FDA-Public Use
  Company Number: AU-009507513-1509AUS012663

PATIENT
  Sex: Male

DRUGS (4)
  1. PEGATRON [Suspect]
     Active Substance: PEGINTERFERON ALFA-2B\RIBAVIRIN
     Indication: HEPATITIS C VIRUS TEST POSITIVE
     Dosage: FOR 24 WEEKS
     Dates: start: 20090115, end: 2009
  2. RIBAVIRIN. [Suspect]
     Active Substance: RIBAVIRIN
     Indication: HEPATITIS C VIRUS TEST POSITIVE
     Dosage: FOR 24 WEEKS
     Route: 048
     Dates: start: 20090115, end: 2009
  3. PEGASYS [Suspect]
     Active Substance: PEGINTERFERON ALFA-2A
     Indication: HEPATITIS C VIRUS TEST POSITIVE
     Dosage: FOR 48 WEEKS
     Dates: start: 20100515, end: 2011
  4. RIBAVIRIN. [Suspect]
     Active Substance: RIBAVIRIN
     Dosage: FOR 48 WEEKS
     Route: 048
     Dates: start: 201005, end: 2011

REACTIONS (8)
  - Ageusia [Unknown]
  - Peptic ulcer [Unknown]
  - Cataract [Unknown]
  - Hypoaesthesia [Unknown]
  - Mental disorder [Unknown]
  - Abdominal pain [Unknown]
  - Arthritis [Unknown]
  - Condition aggravated [Recovered/Resolved]
